FAERS Safety Report 5471033-1 (Version None)
Quarter: 2007Q3

REPORT INFORMATION
  Report Type: 
  Country: None (occurrence: None)
  Receive Date: 20070928
  Receipt Date: 20070925
  Transmission Date: 20080115
  Serious: Yes (Hospitalization)
  Sender: FDA-Public Use
  Company Number: B0488569A

PATIENT
  Age: 49 Year
  Sex: Female

DRUGS (6)
  1. TRIZIVIR [Suspect]
     Indication: HIV INFECTION
     Dosage: 1TAB TWICE PER DAY
     Route: 048
     Dates: start: 20070502, end: 20070726
  2. BACTRIM [Suspect]
     Indication: DRUG USE FOR UNKNOWN INDICATION
     Dosage: 1TAB PER DAY
     Route: 048
     Dates: start: 20070502, end: 20070725
  3. ACETAMINOPHEN [Concomitant]
     Route: 048
     Dates: start: 20070618, end: 20070618
  4. ACETAMINOPHEN [Concomitant]
     Route: 048
     Dates: start: 20070719, end: 20070719
  5. ATACAND [Concomitant]
     Route: 065
  6. AMLOR [Concomitant]
     Route: 065

REACTIONS (9)
  - LUNG INFECTION [None]
  - PERIVASCULAR DERMATITIS [None]
  - PRURITUS [None]
  - PYREXIA [None]
  - RASH [None]
  - RASH MACULO-PAPULAR [None]
  - RASH PUSTULAR [None]
  - SKIN LESION [None]
  - TOXIC SKIN ERUPTION [None]
